FAERS Safety Report 8276170-4 (Version None)
Quarter: 2012Q2

REPORT INFORMATION
  Report Type: 
  Country: None (occurrence: None)
  Receive Date: 20120409
  Receipt Date: 20120326
  Transmission Date: 20120825
  Serious: Yes (Other)
  Sender: FDA-Public Use
  Company Number: 2012SA021365

PATIENT
  Age: 26 Year
  Sex: Male

DRUGS (2)
  1. GOLD BOND / UNKNOWN / UNKNOWN [Suspect]
     Dosage: ;UNKNOWN;UNKNOWN
  2. ALCOHOL [Suspect]
     Dosage: ;UNKNOWN;ORAL
     Route: 048

REACTIONS (7)
  - ABASIA [None]
  - MUSCULAR WEAKNESS [None]
  - ILLUSION [None]
  - ACCIDENTAL EXPOSURE [None]
  - ARTHRALGIA [None]
  - BLOOD CREATINE PHOSPHOKINASE INCREASED [None]
  - WEIGHT DECREASED [None]
